FAERS Safety Report 14071653 (Version 2)
Quarter: 2018Q2

REPORT INFORMATION
  Report Type: Spontaneous
  Country: US (occurrence: US)
  Receive Date: 20171010
  Receipt Date: 20180404
  Transmission Date: 20180711
  Serious: No
  Sender: FDA-Public Use
  Company Number: US-SA-2017SA150460

PATIENT
  Age: 64 Year
  Sex: Male

DRUGS (5)
  1. DUPIXENT [Suspect]
     Active Substance: DUPILUMAB
     Indication: DERMATITIS ATOPIC
     Route: 058
     Dates: start: 20170721, end: 20170721
  2. DUPIXENT [Suspect]
     Active Substance: DUPILUMAB
     Indication: RASH
     Route: 058
     Dates: start: 20170721, end: 20170721
  3. DUPIXENT [Suspect]
     Active Substance: DUPILUMAB
     Indication: RASH
     Route: 058
     Dates: start: 20170804
  4. PREDNISONE. [Concomitant]
     Active Substance: PREDNISONE
     Route: 065
  5. DUPIXENT [Suspect]
     Active Substance: DUPILUMAB
     Indication: DERMATITIS ATOPIC
     Route: 058
     Dates: start: 20170804

REACTIONS (7)
  - Dry skin [Not Recovered/Not Resolved]
  - Oral herpes [Recovering/Resolving]
  - Hallucination [Unknown]
  - Dermatitis atopic [Unknown]
  - Rash pruritic [Not Recovered/Not Resolved]
  - Scrotal inflammation [Not Recovered/Not Resolved]
  - Rash [Unknown]

NARRATIVE: CASE EVENT DATE: 2017
